FAERS Safety Report 9903061 (Version 1)
Quarter: 2014Q1

REPORT INFORMATION
  Report Type: Spontaneous
  Country: US (occurrence: US)
  Receive Date: 20140217
  Receipt Date: 20140217
  Transmission Date: 20141002
  Serious: Yes (Death, Other)
  Sender: FDA-Public Use
  Company Number: US-BAXTER-2014BAX006993

PATIENT
  Age: 72 Year
  Sex: Male

DRUGS (2)
  1. VANCOMYCIN INJECTION, USP [Suspect]
     Indication: DIABETIC FOOT INFECTION
     Route: 065
  2. CEFTRIAXONE [Suspect]
     Indication: DIABETIC FOOT INFECTION
     Route: 065

REACTIONS (2)
  - Renal impairment [Unknown]
  - Cardiac failure [Fatal]
